FAERS Safety Report 14345261 (Version 2)
Quarter: 2018Q1

REPORT INFORMATION
  Report Type: Spontaneous
  Country: US (occurrence: US)
  Receive Date: 20180103
  Receipt Date: 20180212
  Transmission Date: 20180509
  Serious: Yes (Life-Threatening, Hospitalization, Other)
  Sender: FDA-Public Use
  Company Number: US-DRREDDYS-USA/USA/17/0095429

PATIENT
  Age: 70 Year
  Sex: Female

DRUGS (2)
  1. TACROLIMUS. [Suspect]
     Active Substance: TACROLIMUS
     Indication: IMMUNOSUPPRESSANT DRUG THERAPY
     Route: 065
  2. TACROLIMUS. [Suspect]
     Active Substance: TACROLIMUS
     Route: 065

REACTIONS (4)
  - Acute kidney injury [Recovering/Resolving]
  - Pulmonary arterial pressure increased [Not Recovered/Not Resolved]
  - Right ventricular failure [Recovered/Resolved]
  - Tricuspid valve incompetence [Recovering/Resolving]
